FAERS Safety Report 19922072 (Version 1)
Quarter: 2021Q4

REPORT INFORMATION
  Report Type: Report from Study
  Country: CN (occurrence: CN)
  Receive Date: 20211005
  Receipt Date: 20211005
  Transmission Date: 20220304
  Serious: Yes (Hospitalization)
  Sender: FDA-Public Use
  Company Number: CN-JIANGSU SIMCERE CO., LTD.-2021XSYY0045

PATIENT
  Age: 62 Year
  Sex: Female
  Weight: 63 kg

DRUGS (4)
  1. TRILACICLIB [Suspect]
     Active Substance: TRILACICLIB
     Indication: Myelosuppression
     Dosage: 396 MG, QD
     Route: 041
     Dates: start: 20210827, end: 20210831
  2. TRILACICLIB [Suspect]
     Active Substance: TRILACICLIB
     Indication: Myelosuppression
     Dosage: 396 MG, QD
     Route: 041
     Dates: start: 20210919
  3. TOPOTECAN HYDROCHLORIDE [Suspect]
     Active Substance: TOPOTECAN HYDROCHLORIDE
     Indication: Small cell lung cancer extensive stage
     Dosage: 2.06 MG, QD
     Route: 041
     Dates: start: 20210827, end: 20210831
  4. TOPOTECAN HYDROCHLORIDE [Suspect]
     Active Substance: TOPOTECAN HYDROCHLORIDE
     Indication: Small cell lung cancer extensive stage
     Dosage: 2.06 MG, QD
     Route: 041
     Dates: start: 20210919

REACTIONS (1)
  - Pyrexia [Recovered/Resolved]

NARRATIVE: CASE EVENT DATE: 20210919
